FAERS Safety Report 5123073-X (Version None)
Quarter: 2006Q4

REPORT INFORMATION
  Report Type: 
  Country: None (occurrence: None)
  Receive Date: 20061005
  Receipt Date: 20060926
  Transmission Date: 20070319
  Serious: Yes (Other)
  Sender: FDA-Public Use
  Company Number: T200600989

PATIENT
  Age: 37 Year
  Sex: Male

DRUGS (1)
  1. OPTIRAY 300 [Suspect]
     Indication: COMPUTERISED TOMOGRAM ABDOMEN
     Dosage: 100 ML, SINGLE, INTRAVENOUS
     Route: 042
     Dates: start: 20060908, end: 20060908

REACTIONS (8)
  - BLOOD PRESSURE INCREASED [None]
  - CREPITATIONS [None]
  - HYPOAESTHESIA ORAL [None]
  - LARYNGEAL OEDEMA [None]
  - PARAESTHESIA ORAL [None]
  - PHARYNGEAL OEDEMA [None]
  - PROCEDURAL COMPLICATION [None]
  - RALES [None]
